FAERS Safety Report 11898696 (Version 1)
Quarter: 2016Q1

REPORT INFORMATION
  Report Type: Report from Study
  Country: US (occurrence: US)
  Receive Date: 20160108
  Receipt Date: 20160108
  Transmission Date: 20160526
  Serious: Yes (Hospitalization)
  Sender: FDA-Public Use
  Company Number: PHHO2014US020721

PATIENT
  Age: 58 Year
  Sex: Male
  Weight: 79.6 kg

DRUGS (2)
  1. DABRAFENIB [Suspect]
     Active Substance: DABRAFENIB
     Indication: NON-SMALL CELL LUNG CANCER
     Dosage: 100 MG, BID
     Route: 048
     Dates: start: 20140703, end: 20140728
  2. TRAMETINIB [Suspect]
     Active Substance: TRAMETINIB
     Indication: NON-SMALL CELL LUNG CANCER
     Dosage: 2 MG, QD
     Route: 048
     Dates: start: 20140703

REACTIONS (1)
  - Pyrexia [Recovered/Resolved]

NARRATIVE: CASE EVENT DATE: 20140725
